FAERS Safety Report 13551857 (Version 1)
Quarter: 2017Q2

REPORT INFORMATION
  Report Type: Spontaneous
  Country: US (occurrence: US)
  Receive Date: 20170516
  Receipt Date: 20170516
  Transmission Date: 20170830
  Serious: No
  Sender: FDA-Public Use
  Company Number: US-009507513-1705USA005349

PATIENT
  Sex: Male

DRUGS (1)
  1. ASMANEX [Suspect]
     Active Substance: MOMETASONE FUROATE
     Dosage: 110MCG/ONE INHALATION ONCE A DAY
     Route: 055

REACTIONS (5)
  - Product quality issue [Unknown]
  - Product taste abnormal [Unknown]
  - Drug dose omission [Unknown]
  - Product impurity [Unknown]
  - No adverse event [Unknown]
